FAERS Safety Report 8830437 (Version 2)
Quarter: 2013Q1

REPORT INFORMATION
  Report Type: Spontaneous
  Country: GB (occurrence: GB)
  Receive Date: 20121009
  Receipt Date: 20130314
  Transmission Date: 20140127
  Serious: Yes (Life-Threatening, Hospitalization, Other)
  Sender: FDA-Public Use
  Company Number: PHHY2012GB081671

PATIENT
  Age: 0 Year
  Sex: Female
  Weight: .45 kg

DRUGS (2)
  1. NIFEDIPINE [Suspect]
     Route: 064
  2. FOLIC ACID [Suspect]
     Route: 064

REACTIONS (15)
  - Foetal growth restriction [Unknown]
  - Neonatal respiratory distress syndrome [Unknown]
  - Decreased activity [Unknown]
  - Low birth weight baby [Unknown]
  - Pneumatosis [Recovered/Resolved]
  - Dyspnoea [Recovered/Resolved]
  - Hyperglycaemia [Unknown]
  - Necrotising colitis [Unknown]
  - Intestinal dilatation [Unknown]
  - Premature baby [Unknown]
  - Apnoea [Unknown]
  - Bradycardia [Unknown]
  - Amniotic fluid volume decreased [Unknown]
  - Haemoglobin decreased [Recovering/Resolving]
  - Foetal exposure during pregnancy [Unknown]
